FAERS Safety Report 6481343-7 (Version None)
Quarter: 2009Q4

REPORT INFORMATION
  Report Type: 
  Country: None (occurrence: None)
  Receive Date: 20091208
  Receipt Date: 20091125
  Transmission Date: 20100525
  Serious: Yes (Other)
  Sender: FDA-Public Use
  Company Number: B0605863A

PATIENT
  Sex: Male

DRUGS (6)
  1. AVOLVE [Suspect]
     Indication: BENIGN PROSTATIC HYPERPLASIA
     Dosage: .5MG PER DAY
     Route: 048
     Dates: start: 20091016, end: 20091114
  2. BLOPRESS [Concomitant]
     Indication: HYPERTENSION
     Route: 048
  3. ZETIA [Concomitant]
     Dosage: 10MG PER DAY
     Route: 048
  4. RIZE [Concomitant]
     Indication: DRUG USE FOR UNKNOWN INDICATION
     Dosage: 5MG PER DAY
     Route: 048
  5. ALLEGRA [Concomitant]
     Indication: URTICARIA
     Dosage: 60MG PER DAY
     Route: 048
  6. PREDONINE [Concomitant]
     Indication: URTICARIA
     Dosage: 5MG PER DAY
     Route: 048

REACTIONS (4)
  - ECZEMA [None]
  - GENERALISED ERYTHEMA [None]
  - RASH PAPULAR [None]
  - TOXIC SKIN ERUPTION [None]
